FAERS Safety Report 9334444 (Version 1)
Quarter: 2013Q2

REPORT INFORMATION
  Report Type: Spontaneous
  Country: US (occurrence: US)
  Receive Date: 20130606
  Receipt Date: 20130606
  Transmission Date: 20140414
  Serious: No
  Sender: FDA-Public Use
  Company Number: US-AMGEN-USASP2013028110

PATIENT
  Age: 50 Year
  Sex: Female

DRUGS (7)
  1. PROLIA [Suspect]
     Indication: OSTEOPOROSIS POSTMENOPAUSAL
     Dosage: UNK
     Dates: start: 201212
  2. DONNATAL [Concomitant]
  3. VIVELLE-DOT [Concomitant]
  4. PROMETRIUM                         /00110701/ [Concomitant]
  5. FLONASE [Concomitant]
  6. AZELASTINE [Concomitant]
  7. VITAMIN D                          /00107901/ [Concomitant]

REACTIONS (3)
  - Irritable bowel syndrome [Not Recovered/Not Resolved]
  - Stress [Unknown]
  - Somnolence [Unknown]
